FAERS Safety Report 7703333-6 (Version None)
Quarter: 2011Q3

REPORT INFORMATION
  Report Type: 
  Country: None (occurrence: None)
  Receive Date: 20110823
  Receipt Date: 20110809
  Transmission Date: 20111222
  Serious: Yes (Other)
  Sender: FDA-Public Use
  Company Number: FR-ELI_LILLY_AND_COMPANY-FR201108003125

PATIENT
  Age: 74 Year
  Sex: Female

DRUGS (1)
  1. FORTEO [Suspect]
     Indication: OSTEOPOROSIS
     Dosage: 20 UG, QD
     Route: 058
     Dates: start: 20100505

REACTIONS (5)
  - GALLBLADDER PAIN [None]
  - ASTHENIA [None]
  - NEURALGIA [None]
  - CHOLELITHIASIS [None]
  - PAIN IN EXTREMITY [None]
